FAERS Safety Report 4859672-X (Version None)
Quarter: 2005Q4

REPORT INFORMATION
  Report Type: 
  Country: None (occurrence: None)
  Receive Date: 20051215
  Receipt Date: 20051215
  Transmission Date: 20060501
  Serious: No
  Sender: FDA-Public Use
  Company Number: None

PATIENT
  Age: 15 Year
  Sex: Female
  Weight: 59 kg

DRUGS (1)
  1. POLYGAM [Suspect]
     Indication: TOXIC SHOCK SYNDROME
     Dosage: 120 GRAMS X 1 IV
     Route: 042
     Dates: start: 20051017

REACTIONS (8)
  - CHILLS [None]
  - DELIRIUM [None]
  - HEADACHE [None]
  - HYPERTENSION [None]
  - INFUSION RELATED REACTION [None]
  - RASH [None]
  - RESPIRATORY RATE INCREASED [None]
  - TACHYCARDIA [None]
